FAERS Safety Report 5515086-0 (Version None)
Quarter: 2007Q4

REPORT INFORMATION
  Report Type: 
  Country: None (occurrence: None)
  Receive Date: 20071113
  Receipt Date: 20061221
  Transmission Date: 20080405
  Serious: No
  Sender: FDA-Public Use
  Company Number: A0632479A

PATIENT
  Sex: Female

DRUGS (3)
  1. COREG [Suspect]
     Indication: HEART RATE DECREASED
     Dosage: 6.25MG TWICE PER DAY
     Route: 048
     Dates: start: 20050701
  2. SPIRONOLACTONE [Concomitant]
  3. BLOOD PRESSURE MEDICATION [Concomitant]

REACTIONS (3)
  - DYSPNOEA [None]
  - FATIGUE [None]
  - GAIT DISTURBANCE [None]
